FAERS Safety Report 8004765-1 (Version None)
Quarter: 2011Q4

REPORT INFORMATION
  Report Type: 
  Country: None (occurrence: None)
  Receive Date: 20111223
  Receipt Date: 20111212
  Transmission Date: 20120403
  Serious: Yes (Hospitalization)
  Sender: FDA-Public Use
  Company Number: JP-NOVOPROD-313585

PATIENT
  Age: 70 Year
  Sex: Male

DRUGS (5)
  1. LEVEMIR [Suspect]
     Indication: TYPE 2 DIABETES MELLITUS
     Dosage: 6 U, QD
     Dates: start: 20090610, end: 20090624
  2. HUMALOG MIX 50 [Concomitant]
     Indication: DIABETES MELLITUS
     Dosage: 24U/SC
  3. NOVOLIN R [Suspect]
     Indication: TYPE 2 DIABETES MELLITUS
  4. HUMACART N [Concomitant]
  5. HUMALOG [Concomitant]
     Indication: DIABETES MELLITUS
     Dosage: 30U/SC

REACTIONS (3)
  - HYPOGLYCAEMIA [None]
  - ANTI-INSULIN ANTIBODY [None]
  - HYPERGLYCAEMIA [None]
